FAERS Safety Report 6525048-2 (Version None)
Quarter: 2009Q4

REPORT INFORMATION
  Report Type: 
  Country: None (occurrence: None)
  Receive Date: 20091214
  Receipt Date: 20090810
  Transmission Date: 20100525
  Serious: Yes (Other)
  Sender: FDA-Public Use
  Company Number: 650021

PATIENT
  Age: 51 Year
  Sex: Female

DRUGS (5)
  1. PEGASYS [Suspect]
     Indication: HEPATITIS C
     Dosage: 180 UG 1 PER WEEK
     Dates: start: 20000101
  2. RIBAVIRIN [Suspect]
     Indication: HEPATITIS C
     Dosage: 600 MG 2 PER DAY
     Dates: start: 20000101
  3. SYNTHROID [Concomitant]
  4. INSULIN (INSULIN) [Concomitant]
  5. GLYBURIDE [Concomitant]

REACTIONS (7)
  - DIABETES MELLITUS [None]
  - HEADACHE [None]
  - MOOD SWINGS [None]
  - PLATELET COUNT DECREASED [None]
  - THYROID DISORDER [None]
  - VIRAL LOAD INCREASED [None]
  - WHITE BLOOD CELL COUNT DECREASED [None]
